FAERS Safety Report 8224872-8 (Version None)
Quarter: 2012Q1

REPORT INFORMATION
  Report Type: 
  Country: None (occurrence: None)
  Receive Date: 20120321
  Receipt Date: 20120306
  Transmission Date: 20120608
  Serious: Yes (Hospitalization, Other)
  Sender: FDA-Public Use
  Company Number: US-ROCHE-1049869

PATIENT
  Age: 43 Year
  Sex: Male

DRUGS (3)
  1. AVASTIN [Suspect]
     Indication: SQUAMOUS CELL CARCINOMA
     Dosage: DATE OF LAST DOSE PRIOR TO SAE : 05/MAR/2012
     Dates: start: 20120123
  2. CISPLATIN [Suspect]
     Indication: SQUAMOUS CELL CARCINOMA
     Dosage: DATE OF LAST DOSE PRIOR TO SAE : 05/MAR/2012
     Dates: start: 20120123
  3. CETUXIMAB [Suspect]
     Indication: SQUAMOUS CELL CARCINOMA
     Dosage: DATE OF LAST DOSE PRIOR TO SAE : 05/MAR/2012
     Dates: start: 20120123

REACTIONS (4)
  - THROMBOSIS [None]
  - EMBOLISM [None]
  - LYMPHOPENIA [None]
  - WHITE BLOOD CELL COUNT DECREASED [None]
